FAERS Safety Report 23327401 (Version 1)
Quarter: 2023Q4

REPORT INFORMATION
  Report Type: Spontaneous
  Country: US (occurrence: US)
  Receive Date: 20231221
  Receipt Date: 20231221
  Transmission Date: 20240109
  Serious: No
  Sender: FDA-Public Use
  Company Number: US-BRISTOL-MYERS SQUIBB COMPANY-2023-184801

PATIENT
  Age: 74 Year
  Sex: Male
  Weight: 83.46 kg

DRUGS (1)
  1. REVLIMID [Suspect]
     Active Substance: LENALIDOMIDE
     Indication: Plasma cell myeloma
     Dosage: FREQ-3WKSON/1WKOFF
     Route: 048
     Dates: start: 20231101

REACTIONS (1)
  - Abdominal discomfort [Recovering/Resolving]
